FAERS Safety Report 16895723 (Version 1)
Quarter: 2019Q4

REPORT INFORMATION
  Report Type: Spontaneous
  Country: US (occurrence: US)
  Receive Date: 20190814
  Receipt Date: 20190814
  Transmission Date: 20200122
  Serious: No
  Sender: FDA-Public Use
  Company Number: None

PATIENT
  Age: 73 Year
  Sex: Male

DRUGS (1)
  1. INSULIN ASPART [Suspect]
     Active Substance: INSULIN ASPART
     Indication: DIABETES MELLITUS
     Dosage: ?          OTHER FREQUENCY:OTHER;?
     Route: 058
     Dates: start: 20190506, end: 20190507

REACTIONS (12)
  - Oxygen saturation decreased [None]
  - Blood glucose increased [None]
  - Disorientation [None]
  - Respiratory rate increased [None]
  - Fall [None]
  - Hypoglycaemia [None]
  - Somnolence [None]
  - Incorrect dose administered [None]
  - Blood pressure systolic increased [None]
  - Product communication issue [None]
  - Confusional state [None]
  - Decreased appetite [None]

NARRATIVE: CASE EVENT DATE: 20190507
